FAERS Safety Report 12779703 (Version 1)
Quarter: 2016Q3

REPORT INFORMATION
  Report Type: Spontaneous
  Country: US (occurrence: US)
  Receive Date: 20160926
  Receipt Date: 20160926
  Transmission Date: 20161109
  Serious: No
  Sender: FDA-Public Use
  Company Number: US-PFIZER INC-2016442392

PATIENT
  Age: 60 Year
  Sex: Female
  Weight: 55 kg

DRUGS (6)
  1. PREDNISONE. [Concomitant]
     Active Substance: PREDNISONE
     Indication: SINUSITIS
     Dosage: A TAPERING DOSE
     Route: 048
     Dates: start: 20160730
  2. EQUATE FIBER THERAPY [Concomitant]
     Active Substance: CALCIUM POLYCARBOPHIL
     Indication: CONSTIPATION PROPHYLAXIS
     Dosage: SCOOP OF IT IN A GLASS OF WATER EVERY MORNING
     Route: 048
  3. VITAMIN D [Concomitant]
     Active Substance: CHOLECALCIFEROL
     Indication: PROPHYLAXIS
     Dosage: 200 IU, 1X/DAY
     Route: 048
     Dates: start: 201601
  4. AUGMENTIN [Concomitant]
     Active Substance: AMOXICILLIN\CLAVULANATE POTASSIUM
     Indication: SINUSITIS
     Dosage: UNK
     Route: 048
     Dates: start: 20160730, end: 20160809
  5. ESTRING [Suspect]
     Active Substance: ESTRADIOL
     Indication: DYSPAREUNIA
     Dosage: 2 MG, UNK, REPLACE EVERY 90 DAYS
     Route: 067
  6. LUTEIN [Concomitant]
     Active Substance: LUTEIN
     Indication: PROPHYLAXIS
     Dosage: 25 MG, 1X/DAY
     Route: 048
     Dates: start: 2011

REACTIONS (3)
  - Vaginal discharge [Unknown]
  - Vaginal odour [Recovered/Resolved]
  - Product odour abnormal [Recovered/Resolved]

NARRATIVE: CASE EVENT DATE: 201606
